FAERS Safety Report 8302664-9 (Version None)
Quarter: 2012Q2

REPORT INFORMATION
  Report Type: 
  Country: None (occurrence: None)
  Receive Date: 20120420
  Receipt Date: 20120411
  Transmission Date: 20120825
  Serious: Yes (Hospitalization, Other)
  Sender: FDA-Public Use
  Company Number: US-ELI_LILLY_AND_COMPANY-US201201005515

PATIENT
  Sex: Female

DRUGS (18)
  1. HUMALOG [Suspect]
     Indication: TYPE 2 DIABETES MELLITUS
     Dosage: UNK, PRN
     Dates: start: 20111231
  2. HUMALOG [Suspect]
     Dosage: 26 U, FOR LUNCH
     Dates: start: 20070101
  3. HUMALOG [Suspect]
     Dosage: 26 U, FOR DINNER
     Dates: start: 20070101
  4. HUMALOG [Suspect]
     Dosage: 26 U, FOR LUNCH
     Dates: start: 20070101
  5. COUMADIN [Concomitant]
     Dosage: 1/2 TABLET
  6. HUMALOG [Suspect]
     Dosage: 26 U, FOR DINNER
     Dates: start: 20070101
  7. HUMALOG [Suspect]
     Dosage: 16 U, EACH MORNING
     Dates: start: 20070101
  8. HUMALOG [Suspect]
     Dosage: 26 U, FOR DINNER
     Dates: start: 20070101
  9. LANTUS [Concomitant]
     Dosage: 70 U, UNK
  10. ANTIBIOTICS [Concomitant]
     Dosage: UNK
  11. LIDOCAINE [Concomitant]
     Dosage: UNK
     Route: 061
  12. HUMALOG [Suspect]
     Dosage: 16 U, EACH MORNING
     Dates: start: 20070101
  13. LISINOPRIL [Concomitant]
     Dosage: UNK
  14. SYNTHROID [Concomitant]
     Dosage: UNK
  15. HUMALOG [Suspect]
     Dosage: 26 U, FOR LUNCH
     Dates: start: 20070101
  16. LASIX [Concomitant]
     Dosage: UNK
  17. HUMALOG [Suspect]
     Dosage: 16 U, EACH MORNING
     Dates: start: 20070101
  18. ZOCOR [Concomitant]
     Dosage: UNK

REACTIONS (26)
  - HUNGER [None]
  - NAUSEA [None]
  - COLOUR BLINDNESS ACQUIRED [None]
  - VISUAL ACUITY REDUCED [None]
  - RASH ERYTHEMATOUS [None]
  - MALAISE [None]
  - CATARACT [None]
  - ATRIAL FIBRILLATION [None]
  - ARTHRITIS [None]
  - INSOMNIA [None]
  - INJECTION SITE HAEMATOMA [None]
  - LARYNGITIS [None]
  - HOSPITALISATION [None]
  - BLOOD GLUCOSE INCREASED [None]
  - ASTHENIA [None]
  - GAIT DISTURBANCE [None]
  - LENS DISCOLOURATION [None]
  - ARTHRALGIA [None]
  - MUSCULAR WEAKNESS [None]
  - BLOOD GLUCOSE DECREASED [None]
  - INJECTION SITE INJURY [None]
  - UNDERDOSE [None]
  - DYSPNOEA [None]
  - VISUAL IMPAIRMENT [None]
  - INJECTION SITE HAEMORRHAGE [None]
  - INJECTION SITE PAIN [None]
